FAERS Safety Report 20887388 (Version 1)
Quarter: 2022Q2

REPORT INFORMATION
  Report Type: Spontaneous
  Country: DE (occurrence: DE)
  Receive Date: 20220528
  Receipt Date: 20220528
  Transmission Date: 20220721
  Serious: Yes (Life-Threatening, Hospitalization, Other)
  Sender: FDA-Public Use
  Company Number: DE-Accord-264194

PATIENT
  Age: 64 Year
  Sex: Female

DRUGS (1)
  1. QUETIAPINE [Suspect]
     Active Substance: QUETIAPINE
     Indication: Depression
     Dosage: EMPTY BLISTERS OF QUETIAPINE TABLETS WERE FOUND
     Route: 048

REACTIONS (11)
  - Toxicity to various agents [Unknown]
  - Intentional overdose [Unknown]
  - Suicide attempt [Unknown]
  - Somnolence [Recovering/Resolving]
  - Miosis [Recovered/Resolved]
  - Snoring [Recovered/Resolved]
  - Antipsychotic drug level increased [Recovered/Resolved]
  - Hyperventilation [Recovered/Resolved]
  - Mucosal ulceration [Recovered/Resolved]
  - Sopor [Recovered/Resolved]
  - Leukocyturia [Recovered/Resolved]
